FAERS Safety Report 9850590 (Version 1)
Quarter: 2013Q4

REPORT INFORMATION
  Report Type: Spontaneous
  Country: US (occurrence: None)
  Receive Date: 20131226
  Receipt Date: 20131226
  Transmission Date: 20140711
  Serious: Yes (Other)
  Sender: FDA-Public Use
  Company Number: PHEH2012US010786

PATIENT
  Age: 14 Year
  Sex: Male
  Weight: 54 kg

DRUGS (5)
  1. AFINITOR (RAD) UNKNOWN [Suspect]
     Indication: ASTROCYTOMA, LOW GRADE
     Route: 048
     Dates: start: 20120512
  2. DOXYCYCLINE (DOXYCYCLINE) [Concomitant]
  3. TOPIRAMATE (TOPIRAMATE) [Concomitant]
  4. LEVETIRACETAM (LEVETIRACETAM) [Concomitant]
  5. LISINOPRIL (LISINOPRIL) [Concomitant]

REACTIONS (8)
  - Convulsion [None]
  - Nasal congestion [None]
  - Rhinorrhoea [None]
  - Mood altered [None]
  - Drug level decreased [None]
  - Nasopharyngitis [None]
  - Hypersensitivity [None]
  - Stomatitis [None]
